FAERS Safety Report 6936947-1 (Version None)
Quarter: 2010Q3

REPORT INFORMATION
  Report Type: 
  Country: None (occurrence: None)
  Receive Date: 20100818
  Receipt Date: 20100803
  Transmission Date: 20110219
  Serious: Yes (Death)
  Sender: FDA-Public Use
  Company Number: THQ2010A02171

PATIENT
  Sex: Female

DRUGS (2)
  1. PIOGLITAZONE HYDROCHLORIDE [Suspect]
     Dosage: (1 IN 1 D) PER ORAL
     Route: 048
     Dates: start: 20100703
  2. AMLODIPINE [Concomitant]

REACTIONS (1)
  - DEATH [None]
